FAERS Safety Report 18460686 (Version 2)
Quarter: 2020Q4

REPORT INFORMATION
  Report Type: Report from Study
  Country: BE (occurrence: BE)
  Receive Date: 20201104
  Receipt Date: 20201118
  Transmission Date: 20210114
  Serious: Yes (Death, Hospitalization)
  Sender: FDA-Public Use
  Company Number: BE-EMD SERONO-9195340

PATIENT
  Age: 27 Year

DRUGS (1)
  1. REBIF [Suspect]
     Active Substance: INTERFERON BETA-1A
     Indication: PRODUCT USED FOR UNKNOWN INDICATION
     Route: 058
     Dates: start: 20171031, end: 20200727

REACTIONS (2)
  - Completed suicide [Fatal]
  - Delusion [Unknown]

NARRATIVE: CASE EVENT DATE: 20200727
